FAERS Safety Report 17889554 (Version 1)
Quarter: 2020Q2

REPORT INFORMATION
  Report Type: Spontaneous
  Country: US (occurrence: US)
  Receive Date: 20200612
  Receipt Date: 20200612
  Transmission Date: 20200714
  Serious: Yes (Death)
  Sender: FDA-Public Use
  Company Number: None

PATIENT
  Age: 91 Year
  Sex: Male
  Weight: 87.1 kg

DRUGS (11)
  1. DEXAMETHASONE 20 MG LV DAILY [Concomitant]
     Dates: start: 20200607, end: 20200611
  2. INSULIN [Concomitant]
     Active Substance: INSULIN NOS
     Dates: start: 20200604, end: 20200611
  3. HYDROMORPHONE [Concomitant]
     Active Substance: HYDROMORPHONE
     Dates: start: 20200611
  4. METOPROLOL 2.5 MG Q6H IV [Concomitant]
     Dates: start: 20200608, end: 20200611
  5. METOPROLOL 2.5 MG LV X1 [Concomitant]
     Dates: start: 20200611
  6. BICARB 8.4% CONTINUOUS INFUSION [Concomitant]
     Dates: start: 20200610, end: 20200611
  7. MORPHINE 1 MG LV Q4H PN [Concomitant]
     Dates: start: 20200607, end: 20200611
  8. REMDESIVIR. [Suspect]
     Active Substance: REMDESIVIR
     Dates: start: 20200606, end: 20200610
  9. LORAZEPAM 0.5 MG LE1 [Concomitant]
     Dates: start: 20200611
  10. NITROGLYCERIN 0.4 MG/HR PATCH DAILY [Concomitant]
     Dates: start: 20200608, end: 20200611
  11. PROTONIX 40 MG LV Q12H [Concomitant]
     Dates: end: 20200611

REACTIONS (2)
  - Acute kidney injury [None]
  - General physical health deterioration [None]

NARRATIVE: CASE EVENT DATE: 20200611
